FAERS Safety Report 21920351 (Version 2)
Quarter: 2023Q1

REPORT INFORMATION
  Report Type: Spontaneous
  Country: BR (occurrence: BR)
  Receive Date: 20230127
  Receipt Date: 20230203
  Transmission Date: 20230418
  Serious: Yes (Other)
  Sender: FDA-Public Use
  Company Number: BR-UCBSA-2023004116

PATIENT
  Sex: Female

DRUGS (1)
  1. KEPPRA XR [Suspect]
     Active Substance: LEVETIRACETAM
     Indication: Product used for unknown indication
     Dosage: 3 MILLIGRAM, ONCE DAILY (QD)3 PILLS

REACTIONS (4)
  - Epilepsy [Unknown]
  - Endotracheal intubation [Unknown]
  - Coma [Unknown]
  - Dysphemia [Unknown]

NARRATIVE: CASE EVENT DATE: 20201230
